FAERS Safety Report 7129275-5 (Version None)
Quarter: 2010Q4

REPORT INFORMATION
  Report Type: 
  Country: None (occurrence: None)
  Receive Date: 20101130
  Receipt Date: 20101019
  Transmission Date: 20110411
  Serious: Yes (Hospitalization, Other)
  Sender: FDA-Public Use
  Company Number: US-BAXTER-2008BH010979

PATIENT
  Age: 59 Year
  Sex: Male
  Weight: 71 kg

DRUGS (60)
  1. HEPARIN SODIUM INJECTION [Suspect]
     Indication: PULMONARY EMBOLISM
     Route: 040
     Dates: start: 20071226, end: 20071226
  2. HEPARIN SODIUM INJECTION [Suspect]
     Indication: INTRAVENOUS CATHETER MANAGEMENT
     Route: 040
     Dates: start: 20071226, end: 20071226
  3. HEPARIN SODIUM INJECTION [Suspect]
     Indication: THROMBOSIS PROPHYLAXIS
     Route: 040
     Dates: start: 20071226, end: 20071226
  4. HEPARIN SODIUM INJECTION [Suspect]
     Route: 040
     Dates: start: 20071227, end: 20071227
  5. HEPARIN SODIUM INJECTION [Suspect]
     Route: 040
     Dates: start: 20071227, end: 20071227
  6. HEPARIN SODIUM INJECTION [Suspect]
     Route: 040
     Dates: start: 20071227, end: 20071227
  7. HEPARIN SODIUM INJECTION [Suspect]
     Route: 042
     Dates: start: 20071226, end: 20071226
  8. HEPARIN SODIUM INJECTION [Suspect]
     Route: 042
     Dates: start: 20071226, end: 20071226
  9. HEPARIN SODIUM INJECTION [Suspect]
     Route: 042
     Dates: start: 20071226, end: 20071226
  10. HEPARIN SODIUM INJECTION [Suspect]
     Route: 040
     Dates: start: 20080105, end: 20080203
  11. HEPARIN SODIUM INJECTION [Suspect]
     Route: 040
     Dates: start: 20080105, end: 20080203
  12. HEPARIN SODIUM INJECTION [Suspect]
     Route: 040
     Dates: start: 20080105, end: 20080203
  13. HEPARIN SODIUM INJECTION [Suspect]
     Route: 042
     Dates: start: 20071228, end: 20071231
  14. HEPARIN SODIUM INJECTION [Suspect]
     Route: 042
     Dates: start: 20071228, end: 20071231
  15. HEPARIN SODIUM INJECTION [Suspect]
     Route: 042
     Dates: start: 20071228, end: 20071231
  16. HEPARIN SODIUM INJECTION [Suspect]
     Route: 040
     Dates: start: 20080403, end: 20080403
  17. HEPARIN SODIUM INJECTION [Suspect]
     Route: 040
     Dates: start: 20080403, end: 20080403
  18. HEPARIN SODIUM INJECTION [Suspect]
     Route: 040
     Dates: start: 20080403, end: 20080403
  19. HEPARIN SODIUM INJECTION [Suspect]
     Route: 042
     Dates: start: 20080102, end: 20080105
  20. HEPARIN SODIUM INJECTION [Suspect]
     Route: 042
     Dates: start: 20080102, end: 20080105
  21. HEPARIN SODIUM INJECTION [Suspect]
     Route: 042
     Dates: start: 20080102, end: 20080105
  22. HEPARIN SODIUM INJECTION [Suspect]
     Route: 040
     Dates: start: 20080404, end: 20080405
  23. HEPARIN SODIUM INJECTION [Suspect]
     Route: 040
     Dates: start: 20080404, end: 20080405
  24. HEPARIN SODIUM INJECTION [Suspect]
     Route: 040
     Dates: start: 20080404, end: 20080405
  25. HEPARIN SODIUM INJECTION [Suspect]
     Route: 042
     Dates: start: 20080105, end: 20080130
  26. HEPARIN SODIUM INJECTION [Suspect]
     Route: 042
     Dates: start: 20080105, end: 20080130
  27. HEPARIN SODIUM INJECTION [Suspect]
     Route: 042
     Dates: start: 20080105, end: 20080130
  28. HEPARIN SODIUM 1,000 UNITS AND SODIUM CHLORIDE 0.9% [Suspect]
     Indication: PULMONARY EMBOLISM
     Route: 042
     Dates: start: 20071226, end: 20080101
  29. HEPARIN SODIUM 1,000 UNITS AND SODIUM CHLORIDE 0.9% [Suspect]
     Indication: ATRIAL FIBRILLATION
     Route: 042
     Dates: start: 20071226, end: 20080101
  30. HEPARIN SODIUM 1,000 UNITS AND SODIUM CHLORIDE 0.9% [Suspect]
     Route: 042
     Dates: start: 20080403, end: 20080401
  31. HEPARIN SODIUM 1,000 UNITS AND SODIUM CHLORIDE 0.9% [Suspect]
     Route: 042
     Dates: start: 20080403, end: 20080401
  32. HEPARIN SODIUM 5,000 UNITS IN DEXTROSE 5% [Suspect]
     Indication: PRODUCT USED FOR UNKNOWN INDICATION
     Route: 042
     Dates: start: 20080421, end: 20080422
  33. HEPARIN SODIUM INJECTION [Suspect]
     Indication: PRODUCT USED FOR UNKNOWN INDICATION
     Route: 042
     Dates: start: 20080105, end: 20080130
  34. ZOLOFT [Concomitant]
     Indication: PRODUCT USED FOR UNKNOWN INDICATION
     Route: 065
  35. LACTOBACILLUS ACIDOPHILUS [Concomitant]
     Indication: PRODUCT USED FOR UNKNOWN INDICATION
     Route: 048
  36. ASA [Concomitant]
     Indication: PRODUCT USED FOR UNKNOWN INDICATION
     Route: 065
  37. VANCOMYCIN [Concomitant]
     Indication: PRODUCT USED FOR UNKNOWN INDICATION
     Route: 042
  38. WARFARIN [Concomitant]
     Indication: PRODUCT USED FOR UNKNOWN INDICATION
     Route: 065
  39. TYLENOL (CAPLET) [Concomitant]
     Indication: PRODUCT USED FOR UNKNOWN INDICATION
     Route: 065
  40. LIPITOR [Concomitant]
     Indication: PRODUCT USED FOR UNKNOWN INDICATION
     Route: 065
  41. NEXIUM [Concomitant]
     Indication: PRODUCT USED FOR UNKNOWN INDICATION
     Route: 065
  42. COREG [Concomitant]
     Indication: PRODUCT USED FOR UNKNOWN INDICATION
     Route: 065
  43. ZESTRIL [Concomitant]
     Indication: PRODUCT USED FOR UNKNOWN INDICATION
     Route: 065
  44. CELEBREX [Concomitant]
     Indication: PRODUCT USED FOR UNKNOWN INDICATION
     Route: 065
  45. PROTONIX [Concomitant]
     Indication: PRODUCT USED FOR UNKNOWN INDICATION
     Route: 065
  46. IMDUR [Concomitant]
     Indication: PRODUCT USED FOR UNKNOWN INDICATION
     Route: 065
  47. CORGARD [Concomitant]
     Indication: PRODUCT USED FOR UNKNOWN INDICATION
     Route: 065
  48. NITROGLYCERIN COMP. [Concomitant]
     Indication: PRODUCT USED FOR UNKNOWN INDICATION
     Route: 065
  49. ASA [Concomitant]
     Route: 065
  50. TORADOL [Concomitant]
     Indication: PRODUCT USED FOR UNKNOWN INDICATION
     Route: 065
  51. DEMEROL [Concomitant]
     Indication: PRODUCT USED FOR UNKNOWN INDICATION
     Route: 065
  52. METOPROLOL [Concomitant]
     Indication: PRODUCT USED FOR UNKNOWN INDICATION
     Route: 065
  53. AMBIEN [Concomitant]
     Indication: PRODUCT USED FOR UNKNOWN INDICATION
     Route: 065
  54. FLAGYL [Concomitant]
     Indication: PRODUCT USED FOR UNKNOWN INDICATION
     Route: 065
  55. GENTAMYCIN-MP [Concomitant]
     Indication: PRODUCT USED FOR UNKNOWN INDICATION
     Route: 065
  56. SODIUM DIATRIZOATE [Concomitant]
     Indication: PRODUCT USED FOR UNKNOWN INDICATION
     Route: 065
  57. SELENIUM SULFIDE [Concomitant]
     Indication: PRODUCT USED FOR UNKNOWN INDICATION
     Route: 065
  58. XANAX [Concomitant]
     Indication: PRODUCT USED FOR UNKNOWN INDICATION
     Route: 065
  59. FLEXERIL [Concomitant]
     Indication: PRODUCT USED FOR UNKNOWN INDICATION
     Route: 065
  60. TYLENOL W/ CODEINE [Concomitant]
     Indication: PRODUCT USED FOR UNKNOWN INDICATION
     Route: 048

REACTIONS (46)
  - ABDOMINAL PAIN [None]
  - ANAEMIA [None]
  - ANXIETY [None]
  - ATRIAL FIBRILLATION [None]
  - CARDIAC PERFORATION [None]
  - CARDIAC TAMPONADE [None]
  - CHEST PAIN [None]
  - CHILLS [None]
  - CORONARY ARTERY THROMBOSIS [None]
  - COUGH [None]
  - DIZZINESS [None]
  - DYSPNOEA [None]
  - EFFUSION [None]
  - FATIGUE [None]
  - FEELING ABNORMAL [None]
  - FLANK PAIN [None]
  - HEADACHE [None]
  - HYPOAESTHESIA [None]
  - HYPOTENSION [None]
  - INJURY ASSOCIATED WITH DEVICE [None]
  - INSOMNIA [None]
  - IRRITABILITY [None]
  - LABORATORY TEST INTERFERENCE [None]
  - LOCAL SWELLING [None]
  - MEMORY IMPAIRMENT [None]
  - MITRAL VALVE INCOMPETENCE [None]
  - NIGHT SWEATS [None]
  - OEDEMA PERIPHERAL [None]
  - PAIN [None]
  - PAIN IN EXTREMITY [None]
  - PAIN IN JAW [None]
  - PALPITATIONS [None]
  - PARAESTHESIA [None]
  - PERICARDIAL EFFUSION [None]
  - PERICARDIAL HAEMORRHAGE [None]
  - PLEURAL EFFUSION [None]
  - PULMONARY EMBOLISM [None]
  - PYREXIA [None]
  - RECTAL HAEMORRHAGE [None]
  - SKIN EXFOLIATION [None]
  - STAPHYLOCOCCAL INFECTION [None]
  - SUBACUTE ENDOCARDITIS [None]
  - SYNCOPE [None]
  - THROMBOSIS [None]
  - TREMOR [None]
  - WEIGHT DECREASED [None]
